FAERS Safety Report 16781160 (Version 1)
Quarter: 2019Q3

REPORT INFORMATION
  Report Type: Spontaneous
  Country: US (occurrence: US)
  Receive Date: 20190906
  Receipt Date: 20190906
  Transmission Date: 20191005
  Serious: No
  Sender: FDA-Public Use
  Company Number: US-SA-2019SA245842

PATIENT
  Age: 54 Year
  Sex: Male
  Weight: 79.38 kg

DRUGS (10)
  1. ALLEGRA [Suspect]
     Active Substance: FEXOFENADINE HYDROCHLORIDE
     Indication: HYPERSENSITIVITY
     Dosage: UNK UNK, UNK TEMPORARILY STOPPED IN RESPONSE
     Route: 065
  2. ALPRAZOLAM. [Concomitant]
     Active Substance: ALPRAZOLAM
     Indication: POST-TRAUMATIC STRESS DISORDER
  3. ZANAFLEX [Concomitant]
     Active Substance: TIZANIDINE HYDROCHLORIDE
     Indication: MUSCLE SPASMS
     Dosage: 4 MG, TID
     Route: 048
     Dates: start: 2009
  4. ZYRTEC [LEVOCABASTINE HYDROCHLORIDE] [Concomitant]
     Indication: HYPERSENSITIVITY
     Dosage: 10 MG, QD
     Route: 048
  5. ALPRAZOLAM. [Concomitant]
     Active Substance: ALPRAZOLAM
     Indication: PANIC ATTACK
     Dosage: 1 MG, QD,1MG TABLET TAKEN BY MOUTH 5 TIMES DAILY
     Route: 048
     Dates: start: 1986
  6. BUDESONIDE. [Concomitant]
     Active Substance: BUDESONIDE
     Indication: ASTHMA
     Dosage: UNK UNK, PRN,MAYBE 80MG, BUT BOX HAS BEEN DISCARDED.
     Route: 055
  7. ELETRIPTAN HYDROBROMIDE. [Suspect]
     Active Substance: ELETRIPTAN HYDROBROMIDE
     Indication: MIGRAINE
     Dosage: 1 DF, BID
     Route: 048
     Dates: start: 2009
  8. RHINOCORT [BUDESONIDE] [Concomitant]
     Indication: HYPERSENSITIVITY
     Dosage: UNK UNK, BID,1 SPRAY IN EACH NOSTRIL TWICE DAILY
     Route: 045
     Dates: start: 2009
  9. ALLEGRA [Suspect]
     Active Substance: FEXOFENADINE HYDROCHLORIDE
     Dosage: SWITCHED TO ALLEGRA UNKNOWN DATEUNK
  10. BENADRYL [Concomitant]
     Active Substance: DIPHENHYDRAMINE HYDROCHLORIDE
     Indication: HYPERSENSITIVITY
     Dosage: 6-25MG TABLETS TAKEN BY MOUTH DAILY:2 IN MORNING,2 IN EVENING, 2 BEFORE BED
     Route: 048
     Dates: start: 2017

REACTIONS (8)
  - Abdominal pain upper [Not Recovered/Not Resolved]
  - Nausea [Not Recovered/Not Resolved]
  - Blood pressure increased [Not Recovered/Not Resolved]
  - Feeding disorder [Not Recovered/Not Resolved]
  - Temperature intolerance [Not Recovered/Not Resolved]
  - Vomiting [Not Recovered/Not Resolved]
  - Dizziness [Not Recovered/Not Resolved]
  - Drug ineffective [Unknown]

NARRATIVE: CASE EVENT DATE: 2013
